FAERS Safety Report 7473147-3 (Version None)
Quarter: 2011Q2

REPORT INFORMATION
  Report Type: 
  Country: None (occurrence: None)
  Receive Date: 20110511
  Receipt Date: 20110510
  Transmission Date: 20111010
  Serious: Yes (Hospitalization)
  Sender: FDA-Public Use
  Company Number: TW-ROCHE-775887

PATIENT
  Age: 52 Year
  Sex: Female

DRUGS (4)
  1. AVASTIN [Suspect]
     Dosage: START DATE REPORTED AS: 2011.
     Route: 042
     Dates: start: 20110428
  2. LEUCOVORIN CALCIUM [Concomitant]
     Dosage: TWICE (ON DAY1 AND DAY8) EVERY THREE WEEKS,
     Route: 042
     Dates: start: 20110407
  3. OXALIPLATIN [Concomitant]
     Dosage: ON DAY 1 AND 8 EVERY THRE WEEKS.
     Route: 042
     Dates: start: 20110407
  4. FLUOROURACIL [Concomitant]
     Dosage: TWICE (ON DAY1 AND DAY8) EVERY THREE WEEKS
     Route: 042
     Dates: start: 20110407

REACTIONS (1)
  - CEREBROVASCULAR ACCIDENT [None]
